FAERS Safety Report 4286322-6 (Version None)
Quarter: 2004Q1

REPORT INFORMATION
  Report Type: 
  Country: None (occurrence: None)
  Receive Date: 20040121
  Receipt Date: 20030305
  Transmission Date: 20041129
  Serious: Yes (Hospitalization)
  Sender: FDA-Public Use
  Company Number: A03200300465

PATIENT
  Age: 79 Year
  Sex: Female

DRUGS (2)
  1. PLAVIX [Suspect]
     Dosage: 75 MG QD - ORAL
     Route: 048
  2. ACETYLSALICYLIC ACID SRT [Concomitant]

REACTIONS (1)
  - RECTAL HAEMORRHAGE [None]
